FAERS Safety Report 18983302 (Version 2)
Quarter: 2021Q1

REPORT INFORMATION
  Report Type: Report from Study
  Country: IT (occurrence: IT)
  Receive Date: 20210309
  Receipt Date: 20210309
  Transmission Date: 20210420
  Serious: Yes (Hospitalization)
  Sender: FDA-Public Use
  Company Number: IT-JNJFOC-20210305639

PATIENT
  Age: 68 Year
  Sex: Female

DRUGS (5)
  1. ALMARYTM [Concomitant]
     Active Substance: FLECAINIDE ACETATE
  2. RIVAROXABAN [Suspect]
     Active Substance: RIVAROXABAN
     Indication: THROMBOSIS PROPHYLAXIS
     Dosage: 20 MG, QD
     Route: 048
     Dates: start: 20191001, end: 20210103
  3. ZYLORIC [Concomitant]
     Active Substance: ALLOPURINOL
     Indication: HYPERURICAEMIA
     Route: 048
  4. AZOR [Concomitant]
     Active Substance: AMLODIPINE BESYLATE\OLMESARTAN MEDOXOMIL
     Indication: HYPERTENSION
     Dosage: 40 MG/10 MG
  5. NEBIVOLOL. [Concomitant]
     Active Substance: NEBIVOLOL

REACTIONS (5)
  - Gaze palsy [Recovered/Resolved]
  - Dysarthria [Recovered/Resolved]
  - Facial nerve disorder [Recovered/Resolved]
  - Monoparesis [Recovered/Resolved]
  - Monoplegia [Recovered/Resolved]

NARRATIVE: CASE EVENT DATE: 20210104
